FAERS Safety Report 5750171-X (Version None)
Quarter: 2008Q2

REPORT INFORMATION
  Report Type: 
  Country: None (occurrence: None)
  Receive Date: 20080522
  Receipt Date: 20080522
  Transmission Date: 20081010
  Serious: Yes (Death)
  Sender: FDA-Public Use
  Company Number: None

PATIENT
  Age: 63 Year
  Sex: Female

DRUGS (1)
  1. COUMADIN [Suspect]
     Dosage: 4 MG DAILY PO
     Route: 048

REACTIONS (1)
  - SUBARACHNOID HAEMORRHAGE [None]
